FAERS Safety Report 24696928 (Version 1)
Quarter: 2024Q4

REPORT INFORMATION
  Report Type: Spontaneous
  Country: IT (occurrence: IT)
  Receive Date: 20241204
  Receipt Date: 20241204
  Transmission Date: 20250115
  Serious: Yes (Hospitalization)
  Sender: NOVARTIS
  Company Number: IT-002147023-NVSC2024IT230585

PATIENT
  Age: 62 Year
  Sex: Male

DRUGS (2)
  1. CARBAMAZEPINE [Suspect]
     Active Substance: CARBAMAZEPINE
     Indication: Trigeminal neuralgia
     Dosage: 400 MG, QD
     Route: 065
  2. TAPENTADOL [Suspect]
     Active Substance: TAPENTADOL
     Indication: Trigeminal neuralgia
     Dosage: 100 MG, QD
     Route: 065

REACTIONS (3)
  - Trigeminal neuralgia [Recovered/Resolved]
  - Rebound effect [Recovered/Resolved]
  - Drug ineffective [Unknown]
